FAERS Safety Report 11068027 (Version 1)
Quarter: 2015Q2

REPORT INFORMATION
  Report Type: Spontaneous
  Country: US (occurrence: None)
  Receive Date: 20150424
  Receipt Date: 20150424
  Transmission Date: 20150821
  Serious: Yes (Hospitalization)
  Sender: FDA-Public Use
  Company Number: None

PATIENT
  Age: 52 Year
  Sex: Male
  Weight: 92.99 kg

DRUGS (5)
  1. TESTOSTERONE CYPIONATE. [Concomitant]
     Active Substance: TESTOSTERONE CYPIONATE
  2. TRAMADOL [Concomitant]
     Active Substance: TRAMADOL
  3. KIRKLAND ADULT 50 + MATURE MULTI VITAMINS [Concomitant]
  4. NATURE MADE SUPER B-COMPLEX [Concomitant]
  5. ATORVASTATIN [Suspect]
     Active Substance: ATORVASTATIN
     Indication: BLOOD CHOLESTEROL INCREASED
     Dosage: ONE (1) TABLET
     Route: 048
     Dates: start: 20150410, end: 20150417

REACTIONS (11)
  - Dizziness [None]
  - Dyspnoea [None]
  - Diarrhoea [None]
  - Pain in extremity [None]
  - Chest pain [None]
  - Fatigue [None]
  - Asthenia [None]
  - Nausea [None]
  - Chromaturia [None]
  - Vertigo [None]
  - Abdominal pain upper [None]

NARRATIVE: CASE EVENT DATE: 20150418
